FAERS Safety Report 4318020-4 (Version None)
Quarter: 2004Q1

REPORT INFORMATION
  Report Type: 
  Country: None (occurrence: None)
  Receive Date: 20040316
  Receipt Date: 20020529
  Transmission Date: 20041129
  Serious: Yes (Death)
  Sender: FDA-Public Use
  Company Number: WAES 0205USA03417

PATIENT
  Age: 52 Year
  Sex: Female
  Weight: 127 kg

DRUGS (23)
  1. ASCORBIC ACID [Concomitant]
     Dates: start: 20011010, end: 20011011
  2. ASCORBIC ACID [Concomitant]
     Route: 048
     Dates: start: 20011012
  3. CHLORPROMAZINE [Suspect]
     Dates: start: 20011010
  4. CHLORZOXAZONE [Concomitant]
     Dates: start: 20011007
  5. CLONAZEPAM [Concomitant]
     Dates: start: 20011010
  6. CLOZAPINE [Suspect]
     Indication: SCHIZOAFFECTIVE DISORDER
     Dates: start: 20011009
  7. FOLIC ACID [Concomitant]
     Dates: start: 20011002
  8. GABAPENTIN [Concomitant]
     Route: 048
  9. GABAPENTIN [Concomitant]
     Route: 048
  10. LEVOTHYROXINE SODIUM [Concomitant]
     Dates: start: 20011002
  11. NAPROXEN [Suspect]
     Indication: INTERVERTEBRAL DISC DEGENERATION
     Dates: start: 20011001, end: 20011011
  12. NAPROXEN [Suspect]
     Dates: start: 20011006, end: 20011009
  13. NAPROXEN [Suspect]
     Dates: start: 20011007, end: 20011007
  14. NAPROXEN [Suspect]
     Dates: end: 20011006
  15. NAPROXEN [Suspect]
     Indication: NUCLEAR MAGNETIC RESONANCE IMAGING
     Dates: start: 20011001, end: 20011011
  16. NAPROXEN [Suspect]
     Dates: start: 20011006, end: 20011009
  17. NAPROXEN [Suspect]
     Dates: start: 20011007, end: 20011007
  18. NAPROXEN [Suspect]
     Dates: end: 20011006
  19. NEFAZODONE HYDROCHLORIDE [Concomitant]
     Route: 048
  20. OXYCODONE [Concomitant]
     Dates: start: 20011010
  21. OXYCODONE [Concomitant]
     Dates: start: 20011010
  22. VIOXX [Suspect]
     Indication: BACK PAIN
     Route: 048
     Dates: start: 20011008
  23. VITAMINS (UNSPECIFIED) [Concomitant]
     Dates: start: 20011002

REACTIONS (5)
  - ARRHYTHMIA [None]
  - CARDIO-RESPIRATORY ARREST [None]
  - COMA [None]
  - GASTRIC HAEMORRHAGE [None]
  - WEIGHT DECREASED [None]
